FAERS Safety Report 16664280 (Version 3)
Quarter: 2019Q3

REPORT INFORMATION
  Report Type: Spontaneous
  Country: US (occurrence: US)
  Receive Date: 20190802
  Receipt Date: 20190924
  Transmission Date: 20191004
  Serious: No
  Sender: FDA-Public Use
  Company Number: US-009507513-1907USA012098

PATIENT
  Age: 19 Year
  Sex: Female
  Weight: 61.68 kg

DRUGS (2)
  1. NEXPLANON [Suspect]
     Active Substance: ETONOGESTREL
     Dosage: 68 MILLIGRAM
     Route: 059
     Dates: start: 20190718, end: 20190718
  2. NEXPLANON [Suspect]
     Active Substance: ETONOGESTREL
     Dosage: 68 MILLIGRAM
     Route: 059
     Dates: start: 2019

REACTIONS (3)
  - Complication associated with device [Recovered/Resolved]
  - Device deployment issue [Recovered/Resolved]
  - No adverse event [Unknown]

NARRATIVE: CASE EVENT DATE: 20190718
